FAERS Safety Report 8561582-1 (Version None)
Quarter: 2012Q3

REPORT INFORMATION
  Report Type: 
  Country: None (occurrence: None)
  Receive Date: 20120802
  Receipt Date: 20120718
  Transmission Date: 20120928
  Serious: No
  Sender: FDA-Public Use
  Company Number: US-ASTRAZENECA-2012SE50737

PATIENT
  Age: 67 Year
  Sex: Female
  Weight: 59 kg

DRUGS (4)
  1. LAMICTAL [Concomitant]
  2. SEROQUEL [Suspect]
     Route: 048
     Dates: start: 19970101, end: 20120501
  3. SEROQUEL [Suspect]
     Indication: SLEEP DISORDER
     Route: 048
     Dates: start: 19960101, end: 19970101
  4. TOPAMAX [Concomitant]

REACTIONS (8)
  - GINGIVAL DISORDER [None]
  - DENTAL CARIES [None]
  - TOOTH EROSION [None]
  - APHAGIA [None]
  - BIPOLAR DISORDER [None]
  - WEIGHT DECREASED [None]
  - OFF LABEL USE [None]
  - TOOTHACHE [None]
